FAERS Safety Report 7825232-1 (Version None)
Quarter: 2011Q4

REPORT INFORMATION
  Report Type: 
  Country: None (occurrence: None)
  Receive Date: 20111019
  Receipt Date: 20111012
  Transmission Date: 20120403
  Serious: Yes (Hospitalization)
  Sender: FDA-Public Use
  Company Number: US-GLAXOSMITHKLINE-A0792966A

PATIENT
  Age: 72 Year
  Sex: Female

DRUGS (8)
  1. AMARYL [Concomitant]
  2. AVANDIA [Suspect]
     Indication: TYPE 2 DIABETES MELLITUS
     Dosage: 8MG PER DAY
     Route: 048
     Dates: start: 20000706, end: 20030301
  3. PRECOSE [Concomitant]
  4. TOPROL-XL [Concomitant]
  5. GLUCOPHAGE [Concomitant]
  6. LASIX [Concomitant]
  7. ALTACE [Concomitant]
  8. BAYCOL [Concomitant]

REACTIONS (4)
  - ISCHAEMIC STROKE [None]
  - CEREBRAL INFARCTION [None]
  - INTRACRANIAL ANEURYSM [None]
  - CEREBROVASCULAR ACCIDENT [None]
